FAERS Safety Report 15004595 (Version 1)
Quarter: 2018Q2

REPORT INFORMATION
  Report Type: Spontaneous
  Country: US (occurrence: US)
  Receive Date: 20180524
  Receipt Date: 20180524
  Transmission Date: 20180711
  Serious: Yes (Other)
  Sender: FDA-Public Use
  Company Number: None

PATIENT
  Age: 3 Day
  Sex: Male
  Weight: 1.64 kg

DRUGS (1)
  1. CALCIUM CHLORIDE. [Suspect]
     Active Substance: CALCIUM CHLORIDE
     Indication: DRUG THERAPY
     Route: 041

REACTIONS (2)
  - Wrong technique in product usage process [None]
  - Infusion site extravasation [None]

NARRATIVE: CASE EVENT DATE: 20180522
